FAERS Safety Report 5879195-9 (Version None)
Quarter: 2008Q3

REPORT INFORMATION
  Report Type: 
  Country: None (occurrence: None)
  Receive Date: 20080911
  Receipt Date: 20080911
  Transmission Date: 20090109
  Serious: Yes (Other)
  Sender: FDA-Public Use
  Company Number: None

PATIENT
  Age: 58 Year
  Sex: Female
  Weight: 54.4316 kg

DRUGS (2)
  1. EVISTA [Suspect]
     Indication: OSTEOPENIA
     Dosage: 1 DAILY PO
     Route: 048
     Dates: start: 20080821, end: 20080828
  2. EVISTA [Suspect]
     Indication: OSTEOPOROSIS
     Dosage: 1 DAILY PO
     Route: 048
     Dates: start: 20080821, end: 20080828

REACTIONS (5)
  - ARTHRALGIA [None]
  - HEADACHE [None]
  - MUSCLE SPASMS [None]
  - MUSCULOSKELETAL PAIN [None]
  - PAIN IN EXTREMITY [None]
